FAERS Safety Report 8553285-4 (Version None)
Quarter: 2012Q3

REPORT INFORMATION
  Report Type: 
  Country: None (occurrence: None)
  Receive Date: 20120731
  Receipt Date: 20120723
  Transmission Date: 20120928
  Serious: Yes (Other)
  Sender: FDA-Public Use
  Company Number: US-UCBSA-062528

PATIENT
  Age: 69 Year
  Sex: Female

DRUGS (1)
  1. CIMZIA [Suspect]
     Indication: PSORIATIC ARTHROPATHY
     Route: 058
     Dates: start: 20120411, end: 20120627

REACTIONS (4)
  - ERYTHEMA [None]
  - PRURITUS [None]
  - SWELLING FACE [None]
  - HYPOAESTHESIA [None]
